FAERS Safety Report 23728623 (Version 1)
Quarter: 2024Q2

REPORT INFORMATION
  Report Type: Spontaneous
  Country: EG (occurrence: EG)
  Receive Date: 20240410
  Receipt Date: 20240410
  Transmission Date: 20240716
  Serious: Yes (Death)
  Sender: FDA-Public Use
  Company Number: EG-PFIZER INC-PV202400046049

PATIENT
  Sex: Male

DRUGS (4)
  1. MEROPENEM [Suspect]
     Active Substance: MEROPENEM
     Indication: Sepsis
     Dosage: 600 MG, 3X/DAY
     Route: 042
     Dates: start: 20240204, end: 20240211
  2. VANCOMYCIN [Suspect]
     Active Substance: VANCOMYCIN
     Dosage: 300 MG, 2X/DAY
     Route: 042
     Dates: start: 20240204, end: 20240211
  3. DIFLUCAN [Concomitant]
     Active Substance: FLUCONAZOLE
     Indication: Sepsis
     Dosage: 18 MG, DAILY
     Route: 042
     Dates: start: 20240204, end: 20240211
  4. MIDAZOLAM HYDROCHLORIDE [Concomitant]
     Active Substance: MIDAZOLAM HYDROCHLORIDE
     Indication: Sepsis
     Dosage: 900 MG, DAILY
     Route: 042
     Dates: start: 20240204, end: 20240211

REACTIONS (1)
  - Drug ineffective [Fatal]
